FAERS Safety Report 10214550 (Version 1)
Quarter: 2014Q2

REPORT INFORMATION
  Report Type: Spontaneous
  Country: US (occurrence: US)
  Receive Date: 20140603
  Receipt Date: 20140603
  Transmission Date: 20141212
  Serious: Yes (Hospitalization)
  Sender: FDA-Public Use
  Company Number: US-GLAXOSMITHKLINE-A1074798A

PATIENT
  Age: 62 Year
  Sex: Female

DRUGS (4)
  1. ADVAIR [Suspect]
     Indication: CHRONIC OBSTRUCTIVE PULMONARY DISEASE
     Dosage: 1PUFF TWICE PER DAY
     Dates: start: 2005
  2. TREXIMET [Suspect]
     Indication: MIGRAINE
  3. SPIRIVA [Concomitant]
  4. PRO-AIR [Concomitant]

REACTIONS (6)
  - Pneumonia [Recovering/Resolving]
  - Lower respiratory tract infection [Recovering/Resolving]
  - Bronchitis [Recovering/Resolving]
  - Dyspnoea [Not Recovered/Not Resolved]
  - Cough [Not Recovered/Not Resolved]
  - Accident [Unknown]
